FAERS Safety Report 4982399-0 (Version None)
Quarter: 2006Q2

REPORT INFORMATION
  Report Type: 
  Country: None (occurrence: None)
  Receive Date: 20060424
  Receipt Date: 20060424
  Transmission Date: 20061013
  Serious: Yes (Other)
  Sender: FDA-Public Use
  Company Number: None

PATIENT
  Sex: Female
  Weight: 117.9352 kg

DRUGS (1)
  1. MELOXICAM [Suspect]
     Indication: OSTEOARTHRITIS
     Dosage: 15 MG 1 PO QD
     Route: 048

REACTIONS (4)
  - FATIGUE [None]
  - HEADACHE [None]
  - INSOMNIA [None]
  - NAUSEA [None]
